FAERS Safety Report 7753537-1 (Version None)
Quarter: 2011Q3

REPORT INFORMATION
  Report Type: 
  Country: None (occurrence: None)
  Receive Date: 20110915
  Receipt Date: 20110908
  Transmission Date: 20111222
  Serious: Yes (Hospitalization)
  Sender: FDA-Public Use
  Company Number: JP-JNJFOC-20110809381

PATIENT
  Age: 63 Year
  Sex: Male

DRUGS (5)
  1. METFORMIN HCL [Concomitant]
     Route: 048
  2. RISPERDAL CONSTA [Suspect]
     Indication: PRODUCT USED FOR UNKNOWN INDICATION
     Route: 030
  3. NORVASC [Concomitant]
     Route: 048
  4. PAMILCON [Concomitant]
     Route: 048
  5. TANATRIL [Concomitant]
     Route: 048

REACTIONS (2)
  - DRUG DOSE OMISSION [None]
  - NEUROLEPTIC MALIGNANT SYNDROME [None]
